FAERS Safety Report 7348158-9 (Version None)
Quarter: 2011Q1

REPORT INFORMATION
  Report Type: 
  Country: None (occurrence: None)
  Receive Date: 20110311
  Receipt Date: 20110302
  Transmission Date: 20110831
  Serious: Yes (Hospitalization)
  Sender: FDA-Public Use
  Company Number: JP-TYCO HEALTHCARE/MALLINCKRODT-T201100544

PATIENT
  Sex: Female

DRUGS (3)
  1. METHADONE HYDROCHLORIDE [Suspect]
     Dosage: 210 MG, TID
     Route: 048
     Dates: start: 20110303
  2. METHADONE HYDROCHLORIDE [Suspect]
     Dosage: 165 MG, TID
     Dates: start: 20110127, end: 20110302
  3. METHADONE HYDROCHLORIDE [Suspect]
     Indication: CANCER PAIN
     Dosage: UNK
     Route: 048
     Dates: start: 20101217, end: 20110126

REACTIONS (2)
  - PYREXIA [None]
  - CANCER PAIN [None]
